FAERS Safety Report 5128350-4 (Version None)
Quarter: 2006Q4

REPORT INFORMATION
  Report Type: 
  Country: None (occurrence: None)
  Receive Date: 20061011
  Receipt Date: 20060915
  Transmission Date: 20070319
  Serious: No
  Sender: FDA-Public Use
  Company Number: 060164

PATIENT
  Age: 38 Year
  Sex: Male
  Weight: 108.8633 kg

DRUGS (1)
  1. POLYETHYLENE GLYCOL 3350 [Suspect]
     Indication: COLONOSCOPY
     Dates: start: 20060914

REACTIONS (1)
  - ANAPHYLACTIC REACTION [None]
